FAERS Safety Report 25799150 (Version 1)
Quarter: 2025Q3

REPORT INFORMATION
  Report Type: Spontaneous
  Country: RU (occurrence: RU)
  Receive Date: 20250913
  Receipt Date: 20250913
  Transmission Date: 20251020
  Serious: Yes (Death, Other)
  Sender: AMGEN
  Company Number: RU-AMGEN-RUSSP2025181920

PATIENT

DRUGS (2)
  1. BLINATUMOMAB [Suspect]
     Active Substance: BLINATUMOMAB
     Indication: Acute lymphocytic leukaemia
     Route: 065
  2. BLINATUMOMAB [Suspect]
     Active Substance: BLINATUMOMAB
     Indication: Acute lymphocytic leukaemia recurrent

REACTIONS (7)
  - Acute lymphocytic leukaemia [Fatal]
  - Neurotoxicity [Unknown]
  - Cytokine release syndrome [Unknown]
  - Seizure [Unknown]
  - Pancreatitis [Unknown]
  - Henoch-Schonlein purpura [Unknown]
  - Tremor [Unknown]
